FAERS Safety Report 6409928-4 (Version None)
Quarter: 2009Q4

REPORT INFORMATION
  Report Type: 
  Country: None (occurrence: None)
  Receive Date: 20091022
  Receipt Date: 20091014
  Transmission Date: 20100525
  Serious: Yes (Hospitalization)
  Sender: FDA-Public Use
  Company Number: US-BAXTER-2009BH015582

PATIENT
  Age: 64 Year
  Sex: Male

DRUGS (12)
  1. GAMMAGARD LIQUID [Suspect]
     Indication: AUTOIMMUNE DISORDER
     Route: 042
     Dates: start: 20080125
  2. GAMMAGARD LIQUID [Suspect]
     Indication: OFF LABEL USE
     Route: 042
     Dates: start: 20080125
  3. PLAVIX [Concomitant]
  4. TOPROL-XL [Concomitant]
  5. PREVACID [Concomitant]
  6. TRAMADOL HCL [Concomitant]
  7. ATORVASTATIN [Concomitant]
  8. BUDESONIDE [Concomitant]
  9. ACETAMINOPHEN [Concomitant]
  10. LORTAB [Concomitant]
  11. REMICADE [Concomitant]
  12. ALTACE [Concomitant]

REACTIONS (3)
  - CHILLS [None]
  - LIQUID PRODUCT PHYSICAL ISSUE [None]
  - PYREXIA [None]
